FAERS Safety Report 16943002 (Version 4)
Quarter: 2020Q3

REPORT INFORMATION
  Report Type: Report from Study
  Country: BR (occurrence: BR)
  Receive Date: 20191021
  Receipt Date: 20200729
  Transmission Date: 20201102
  Serious: Yes (Hospitalization, Other)
  Sender: FDA-Public Use
  Company Number: PHHY2019BR115322

PATIENT
  Age: 73 Year
  Sex: Male
  Weight: 67 kg

DRUGS (14)
  1. XOLAIR [Suspect]
     Active Substance: OMALIZUMAB
     Dosage: 2 UNK ONCE EVERY 4 WEEKS
     Route: 058
     Dates: start: 20190428, end: 202002
  2. DUOVENT [Concomitant]
     Active Substance: FENOTEROL HYDROBROMIDE
     Indication: CHRONIC OBSTRUCTIVE PULMONARY DISEASE
     Dosage: 6 DF, QD (STARTED MORE THAN MORE THAN 10 YEARS AGO)
     Route: 055
  3. XOLAIR [Suspect]
     Active Substance: OMALIZUMAB
     Dosage: UNK
     Route: 065
     Dates: start: 20190424
  4. XOLAIR [Suspect]
     Active Substance: OMALIZUMAB
     Dosage: UNK
     Route: 065
     Dates: start: 20200213
  5. ONBREZ [Suspect]
     Active Substance: INDACATEROL
     Indication: CHRONIC OBSTRUCTIVE PULMONARY DISEASE
     Dosage: UNK
     Route: 065
  6. SIMETHICONE (DIMETHICONE) [Concomitant]
     Active Substance: DIMETHICONE
     Indication: FLATULENCE
     Dosage: 1 DF, BID MORE THAN FIVE YEARS AGO
     Route: 048
  7. ONBREZ [Suspect]
     Active Substance: INDACATEROL
     Indication: LUNG DISORDER
     Dosage: 300 UG, QD (STARTED MORE THAN 5 YEARS AGO)
     Route: 055
  8. SPIRIVA [Concomitant]
     Active Substance: TIOTROPIUM BROMIDE MONOHYDRATE
     Dosage: 2 UNK PUFF
     Route: 055
     Dates: start: 2001
  9. XOLAIR [Suspect]
     Active Substance: OMALIZUMAB
     Indication: URTICARIA
     Dosage: 2 DF, QMO
     Route: 058
     Dates: start: 20190328
  10. PIEMONTE [Concomitant]
     Active Substance: MONTELUKAST SODIUM
     Indication: CHRONIC OBSTRUCTIVE PULMONARY DISEASE
     Dosage: 1 DF, QD (STARTED 3 YEARS AGO)
     Route: 048
  11. HIXIZINE [Concomitant]
     Active Substance: HYDROXYZINE HYDROCHLORIDE
     Indication: PRURITUS
     Dosage: 1 DF, QD (STARTED 2 YEARS AGO)
     Route: 048
  12. MIFLONIDE BREEZHALER [Suspect]
     Active Substance: BUDESONIDE
     Indication: CHRONIC OBSTRUCTIVE PULMONARY DISEASE
     Dosage: 3 DF, QD (STARTED MORE THAN 10 YEARS AGO)
     Route: 055
  13. SPIRIVA [Concomitant]
     Active Substance: TIOTROPIUM BROMIDE MONOHYDRATE
     Indication: CHRONIC OBSTRUCTIVE PULMONARY DISEASE
     Dosage: 1 DF, QD (MORE THAN 10 YEARS AGO)
     Route: 055
  14. DUOVENT [Concomitant]
     Active Substance: FENOTEROL HYDROBROMIDE
     Dosage: 1 UNK
     Route: 055
     Dates: start: 2001

REACTIONS (30)
  - Fatigue [Unknown]
  - Temperature intolerance [Unknown]
  - Respiration abnormal [Not Recovered/Not Resolved]
  - Pruritus [Unknown]
  - Gastric disorder [Recovered/Resolved]
  - Weight decreased [Recovering/Resolving]
  - Urticaria [Recovered/Resolved]
  - Thrombosis [Recovering/Resolving]
  - Pulmonary mass [Unknown]
  - Insomnia [Recovered/Resolved]
  - Sensitivity to weather change [Unknown]
  - Chronic obstructive pulmonary disease [Not Recovered/Not Resolved]
  - Dyspnoea [Not Recovered/Not Resolved]
  - Malaise [Not Recovered/Not Resolved]
  - Pneumonia [Recovered/Resolved]
  - Decreased appetite [Recovered/Resolved]
  - Speech disorder [Recovered/Resolved]
  - Secretion discharge [Not Recovered/Not Resolved]
  - Aortic aneurysm [Unknown]
  - Urticaria [Unknown]
  - Respiratory disorder [Unknown]
  - Flatulence [Not Recovered/Not Resolved]
  - Somnolence [Recovered/Resolved]
  - Peripheral swelling [Recovered/Resolved]
  - Gait inability [Recovered/Resolved]
  - Pain [Recovered/Resolved]
  - Retching [Unknown]
  - Nausea [Recovered/Resolved]
  - Nervousness [Recovered/Resolved]
  - Headache [Recovered/Resolved]

NARRATIVE: CASE EVENT DATE: 2017
